FAERS Safety Report 6042109-5 (Version None)
Quarter: 2009Q1

REPORT INFORMATION
  Report Type: 
  Country: None (occurrence: None)
  Receive Date: 20090116
  Receipt Date: 20090108
  Transmission Date: 20090719
  Serious: Yes (Other)
  Sender: FDA-Public Use
  Company Number: PHHY2008CA32230

PATIENT
  Sex: Male
  Weight: 49.5 kg

DRUGS (2)
  1. EXJADE [Suspect]
     Indication: MOYAMOYA DISEASE
     Dosage: 2000 MG
     Route: 048
     Dates: start: 20081101
  2. EXJADE [Suspect]
     Dosage: 1000 MG/DAY
     Route: 048
     Dates: start: 20081202, end: 20081216

REACTIONS (8)
  - ALANINE AMINOTRANSFERASE INCREASED [None]
  - ASPARTATE AMINOTRANSFERASE INCREASED [None]
  - BILIRUBIN CONJUGATED INCREASED [None]
  - BLOOD BILIRUBIN INCREASED [None]
  - FATIGUE [None]
  - HEPATITIS [None]
  - JAUNDICE [None]
  - SPLENOMEGALY [None]
